FAERS Safety Report 8964321 (Version 1)
Quarter: 2012Q4

REPORT INFORMATION
  Report Type: 
  Country: US (occurrence: US)
  Receive Date: 20121214
  Receipt Date: 20121214
  Transmission Date: 20130627
  Serious: No
  Sender: FDA-Public Use
  Company Number: US-GLAXOSMITHKLINE-A0967870A

PATIENT
  Age: 53 Year
  Sex: Male

DRUGS (3)
  1. AVODART [Suspect]
     Indication: PRODUCT USED FOR UNKNOWN INDICATION
     Dosage: .5MG Per day
     Route: 048
     Dates: start: 20120111, end: 20120228
  2. DIAZEPAM [Concomitant]
  3. AMBIEN [Concomitant]

REACTIONS (5)
  - Ill-defined disorder [Recovering/Resolving]
  - Micturition urgency [Recovering/Resolving]
  - Muscle spasms [Recovering/Resolving]
  - Discomfort [Recovering/Resolving]
  - Genital discomfort [Recovering/Resolving]
